APPROVED DRUG PRODUCT: MINODYL
Active Ingredient: MINOXIDIL
Strength: 2.5MG
Dosage Form/Route: TABLET;ORAL
Application: A072153 | Product #001
Applicant: QUANTUM PHARMICS LTD
Approved: Jul 13, 1988 | RLD: No | RS: No | Type: DISCN